FAERS Safety Report 15962336 (Version 1)
Quarter: 2019Q1

REPORT INFORMATION
  Report Type: Spontaneous
  Country: AU (occurrence: AU)
  Receive Date: 20190214
  Receipt Date: 20190214
  Transmission Date: 20190417
  Serious: Yes (Death)
  Sender: FDA-Public Use
  Company Number: AU-CELGENEUS-AUS-20181008825

PATIENT
  Sex: Male

DRUGS (1)
  1. POMALIDOMIDE [Suspect]
     Active Substance: POMALIDOMIDE
     Indication: PRODUCT USED FOR UNKNOWN INDICATION
     Dosage: DOSE NOT PROVIDED
     Route: 048

REACTIONS (2)
  - Death [Fatal]
  - Chromaturia [Unknown]
